FAERS Safety Report 4488030-5 (Version None)
Quarter: 2004Q4

REPORT INFORMATION
  Report Type: 
  Country: None (occurrence: None)
  Receive Date: 20041028
  Receipt Date: 20041018
  Transmission Date: 20050328
  Serious: Yes (Hospitalization)
  Sender: FDA-Public Use
  Company Number: CH-BRISTOL-MYERS SQUIBB COMPANY-12734091

PATIENT
  Age: 31 Year
  Sex: Female

DRUGS (8)
  1. DOXORUBICIN HCL [Suspect]
     Indication: NON-HODGKIN'S LYMPHOMA
     Route: 037
  2. CYCLOPHOSPHAMIDE [Concomitant]
  3. VINCRISTINE [Concomitant]
  4. CYTARABINE [Concomitant]
     Route: 037
  5. METHOTREXATE [Concomitant]
  6. PREDNISOLONE [Concomitant]
  7. PREDNISONE [Concomitant]
  8. DAUNORUBICIN HCL [Concomitant]

REACTIONS (4)
  - ARACHNOIDITIS [None]
  - MEDICATION ERROR [None]
  - MYELITIS [None]
  - PARALYSIS [None]
